FAERS Safety Report 6868812-2 (Version None)
Quarter: 2010Q3

REPORT INFORMATION
  Report Type: 
  Country: None (occurrence: None)
  Receive Date: 20100722
  Receipt Date: 20080917
  Transmission Date: 20110219
  Serious: No
  Sender: FDA-Public Use
  Company Number: US-PFIZER INC-2008047344

PATIENT
  Age: 26 Year
  Sex: Female
  Weight: 91.63 kg

DRUGS (2)
  1. CHANTIX [Suspect]
     Indication: TOBACCO USER
     Dates: start: 20080221, end: 20080303
  2. CHANTIX [Suspect]
     Indication: NICOTINE DEPENDENCE

REACTIONS (1)
  - PANIC ATTACK [None]
